FAERS Safety Report 17419015 (Version 1)
Quarter: 2020Q1

REPORT INFORMATION
  Report Type: Spontaneous
  Country: US (occurrence: US)
  Receive Date: 20200214
  Receipt Date: 20200214
  Transmission Date: 20200409
  Serious: No
  Sender: FDA-Public Use
  Company Number: US-TEVA-2020-US-1184362

PATIENT
  Sex: Male

DRUGS (1)
  1. AMLODIPINE AND OLMESARTAN MEDOXOMIL TEVA [Suspect]
     Active Substance: AMLODIPINE MALEATE\OLMESARTAN MEDOXOMIL
     Route: 065

REACTIONS (3)
  - Somnolence [Unknown]
  - Drug intolerance [Unknown]
  - Wrong technique in product usage process [Unknown]
